FAERS Safety Report 11999933 (Version 1)
Quarter: 2016Q1

REPORT INFORMATION
  Report Type: Report from Study
  Country: BR (occurrence: BR)
  Receive Date: 20160204
  Receipt Date: 20160204
  Transmission Date: 20160526
  Serious: Yes (Other)
  Sender: FDA-Public Use
  Company Number: PHHY2016BR014550

PATIENT
  Sex: Female
  Weight: 53 kg

DRUGS (3)
  1. LOSARTAN. [Concomitant]
     Active Substance: LOSARTAN
     Indication: BLOOD PRESSURE INCREASED
     Dosage: 50 MG, BID
     Route: 048
  2. EXELON PATCH [Suspect]
     Active Substance: RIVASTIGMINE
     Indication: APPETITE DISORDER
     Dosage: PATCH 5CM2, QD
     Route: 062
  3. EXELON PATCH [Suspect]
     Active Substance: RIVASTIGMINE
     Dosage: PATCH 10 CM2
     Route: 062

REACTIONS (6)
  - Abasia [Unknown]
  - Malaise [Unknown]
  - Pain in extremity [Unknown]
  - Product use issue [Unknown]
  - Blood pressure increased [Unknown]
  - Decreased appetite [Not Recovered/Not Resolved]
